FAERS Safety Report 13756757 (Version 2)
Quarter: 2017Q3

REPORT INFORMATION
  Report Type: Spontaneous
  Country: DZ (occurrence: DZ)
  Receive Date: 20170714
  Receipt Date: 20170803
  Transmission Date: 20171127
  Serious: Yes (Other)
  Sender: FDA-Public Use
  Company Number: DZ-ABBVIE-17P-003-2035903-00

PATIENT

DRUGS (1)
  1. SEVOFRANE [Suspect]
     Active Substance: SEVOFLURANE
     Indication: GASTROINTESTINAL SURGERY
     Route: 055

REACTIONS (2)
  - Haemorrhage [Recovered/Resolved]
  - Hypotension [Recovered/Resolved]
